FAERS Safety Report 22225124 (Version 1)
Quarter: 2023Q2

REPORT INFORMATION
  Report Type: Spontaneous
  Country: US (occurrence: None)
  Receive Date: 20230417
  Receipt Date: 20230417
  Transmission Date: 20230722
  Serious: Yes (Hospitalization)
  Sender: FDA-Public Use
  Company Number: None

PATIENT
  Sex: Female

DRUGS (1)
  1. INLYTA [Suspect]
     Active Substance: AXITINIB
     Indication: Renal cancer
     Dosage: FREQUENCY : TWICE A DAY;?
     Route: 048
     Dates: start: 20230314, end: 20230321

REACTIONS (13)
  - Migraine [None]
  - Rash [None]
  - Hypertransaminasaemia [None]
  - Hepatic failure [None]
  - Drug-induced liver injury [None]
  - Serum ferritin increased [None]
  - Hyponatraemia [None]
  - Inappropriate antidiuretic hormone secretion [None]
  - Metastatic renal cell carcinoma [None]
  - Metastases to lung [None]
  - Gallbladder polyp [None]
  - Anaemia [None]
  - Hypertension [None]
